FAERS Safety Report 6171429-9 (Version None)
Quarter: 2009Q2

REPORT INFORMATION
  Report Type: 
  Country: None (occurrence: None)
  Receive Date: 20090429
  Receipt Date: 20090427
  Transmission Date: 20091009
  Serious: Yes (Death)
  Sender: FDA-Public Use
  Company Number: AU-PURDUE-USA_2009_0037990

PATIENT
  Age: 23 Year
  Sex: Male

DRUGS (1)
  1. MORPHINE SULFATE (SIMILAR TO NDA 19-516) [Suspect]
     Indication: PAIN
     Dates: start: 20020101

REACTIONS (5)
  - ASPIRATION [None]
  - FEELING ABNORMAL [None]
  - HYPERSOMNIA [None]
  - MULTIPLE DRUG OVERDOSE [None]
  - SOCIAL AVOIDANT BEHAVIOUR [None]
